FAERS Safety Report 10213044 (Version 2)
Quarter: 2014Q2

REPORT INFORMATION
  Report Type: Spontaneous
  Country: US (occurrence: US)
  Receive Date: 20140603
  Receipt Date: 20140604
  Transmission Date: 20141212
  Serious: No
  Sender: FDA-Public Use
  Company Number: US-009507513-1406USA000123

PATIENT
  Sex: 0

DRUGS (2)
  1. NEXPLANON [Suspect]
     Dosage: 68 MG/ ONCE EVERY 3 YEARS
     Route: 059
     Dates: start: 20140523
  2. NEXPLANON [Suspect]
     Dosage: 68 MG/ ONCE EVERY 3 YEARS
     Route: 059
     Dates: start: 20140523

REACTIONS (3)
  - Device difficult to use [Unknown]
  - Product quality issue [Unknown]
  - No adverse event [Unknown]
